FAERS Safety Report 8886883 (Version 1)
Quarter: 2012Q4

REPORT INFORMATION
  Report Type: 
  Country: US (occurrence: US)
  Receive Date: 20121105
  Receipt Date: 20121105
  Transmission Date: 20130627
  Serious: Yes (Other)
  Sender: FDA-Public Use
  Company Number: US-PFIZER INC-2012272003

PATIENT
  Age: 56 Year
  Sex: Female
  Weight: 135 kg

DRUGS (2)
  1. TIKOSYN [Suspect]
     Indication: ATRIAL FIBRILLATION
     Dosage: 500 ug, 2x/day
     Route: 048
     Dates: start: 201004, end: 20121030
  2. PROPAFENONE [Concomitant]
     Indication: CARDIAC DISORDER
     Dosage: UNK

REACTIONS (2)
  - Uterine disorder [Unknown]
  - International normalised ratio abnormal [Unknown]
